FAERS Safety Report 12924320 (Version 1)
Quarter: 2016Q4

REPORT INFORMATION
  Report Type: Spontaneous
  Country: US (occurrence: US)
  Receive Date: 20161109
  Receipt Date: 20161109
  Transmission Date: 20170207
  Serious: No
  Sender: FDA-Public Use
  Company Number: None

PATIENT

DRUGS (1)
  1. TETRAVISC FORTE [Suspect]
     Active Substance: TETRACAINE HYDROCHLORIDE
     Route: 047

REACTIONS (1)
  - Product label issue [None]
